FAERS Safety Report 17304825 (Version 1)
Quarter: 2020Q1

REPORT INFORMATION
  Report Type: Spontaneous
  Country: BR (occurrence: BR)
  Receive Date: 20200123
  Receipt Date: 20200123
  Transmission Date: 20200409
  Serious: Yes (Other)
  Sender: FDA-Public Use
  Company Number: BR-PFIZER INC-2020020801

PATIENT
  Age: 55 Year
  Sex: Female

DRUGS (4)
  1. FRONTAL [Suspect]
     Active Substance: ALPRAZOLAM
     Dosage: 6 MG, UNK (3 TABLETS)
     Dates: start: 2003
  2. CELEBRA [Suspect]
     Active Substance: CELECOXIB
     Dosage: 400 MG, DAILY (2 TABLETS)
     Dates: start: 2003
  3. TRAMAL [Suspect]
     Active Substance: TRAMADOL
     Dosage: UNK
     Dates: start: 2003, end: 2018
  4. PROLIFT [Suspect]
     Active Substance: REBOXETINE MESYLATE
     Dosage: UNK
     Dates: start: 2003

REACTIONS (12)
  - Intentional self-injury [Unknown]
  - Hypokinesia [Not Recovered/Not Resolved]
  - Limb asymmetry [Unknown]
  - Feeling of despair [Unknown]
  - Pain [Unknown]
  - Accident at work [Unknown]
  - Haemorrhage [Unknown]
  - Nightmare [Unknown]
  - Limb injury [Unknown]
  - Tendonitis [Unknown]
  - Loss of personal independence in daily activities [Unknown]
  - Fear [Unknown]

NARRATIVE: CASE EVENT DATE: 2005
